FAERS Safety Report 7943164-5 (Version None)
Quarter: 2011Q4

REPORT INFORMATION
  Report Type: 
  Country: None (occurrence: None)
  Receive Date: 20111128
  Receipt Date: 20111117
  Transmission Date: 20120403
  Serious: Yes (Hospitalization, Other)
  Sender: FDA-Public Use
  Company Number: PHHY2011RU76963

PATIENT
  Age: 58 Year
  Sex: Female

DRUGS (3)
  1. VERAPAMIL [Concomitant]
     Dosage: 80 MG, TID
  2. FORADIL COMBI [Suspect]
     Indication: ASTHMA
     Dosage: 1 DF, BID
     Dates: start: 20100316
  3. BERODUAL [Concomitant]

REACTIONS (3)
  - PNEUMONIA [None]
  - BRONCHITIS CHRONIC [None]
  - ASTHMA [None]
